FAERS Safety Report 9576817 (Version 1)
Quarter: 2013Q4

REPORT INFORMATION
  Report Type: Spontaneous
  Country: US (occurrence: US)
  Receive Date: 20131001
  Receipt Date: 20131001
  Transmission Date: 20140711
  Serious: No
  Sender: FDA-Public Use
  Company Number: US-AMGEN-USASP2013004987

PATIENT
  Age: 74 Year
  Sex: Female
  Weight: 44.9 kg

DRUGS (16)
  1. ENBREL [Suspect]
     Indication: RHEUMATOID ARTHRITIS
     Dosage: UNK
     Route: 058
     Dates: start: 2009, end: 2010
  2. ENBREL [Suspect]
     Indication: PSORIASIS
  3. AMITRIPTYLINE [Concomitant]
     Dosage: UNK
  4. PEPCID                             /00706001/ [Concomitant]
     Dosage: UNK
  5. PRAVACHOL [Concomitant]
     Dosage: UNK
  6. PREVACID [Concomitant]
     Dosage: UNK
  7. SYNTHROID [Concomitant]
     Dosage: UNK
  8. TRIAMTERENE [Concomitant]
     Dosage: UNK
  9. CALCITRIOL [Concomitant]
     Dosage: UNK
  10. CALTRATE                           /00944201/ [Concomitant]
     Dosage: UNK
  11. CENTRUM                            /02217401/ [Concomitant]
     Dosage: UNK
  12. ECOTRIN [Concomitant]
     Dosage: UNK
  13. EVISTA [Concomitant]
     Dosage: UNK
  14. ISTALOL [Concomitant]
     Dosage: UNK
  15. LIDODERM [Concomitant]
     Dosage: UNK
  16. MORPHINE [Concomitant]
     Dosage: UNK

REACTIONS (1)
  - Drug ineffective [Recovered/Resolved]
